FAERS Safety Report 7486311-4 (Version None)
Quarter: 2011Q2

REPORT INFORMATION
  Report Type: 
  Country: None (occurrence: None)
  Receive Date: 20110517
  Receipt Date: 20110509
  Transmission Date: 20111010
  Serious: Yes (Hospitalization, Other)
  Sender: FDA-Public Use
  Company Number: JP-CELGENEUS-087-21880-11012826

PATIENT
  Sex: Male

DRUGS (25)
  1. SEIBULE [Concomitant]
     Dosage: 150 MILLIGRAM
     Route: 048
     Dates: start: 20101208
  2. ACTOS [Concomitant]
     Indication: DIABETES MELLITUS
     Dosage: 15 MILLIGRAM
     Route: 048
     Dates: start: 20101110
  3. CELECOXIB [Concomitant]
     Indication: MULTIPLE MYELOMA
     Dosage: 200 MILLIGRAM
     Route: 048
     Dates: start: 20101110
  4. RABEPRAZOLE SODIUM [Concomitant]
     Indication: PROPHYLAXIS
     Dosage: 10 MILLIGRAM
     Route: 048
     Dates: start: 20101110
  5. BONALON [Concomitant]
     Dosage: 35 MILLIGRAM
     Route: 065
  6. SELBEX [Concomitant]
     Dosage: 150 MILLIGRAM
     Route: 048
     Dates: start: 20101208
  7. MARZULENE-S [Concomitant]
     Route: 065
  8. MAGMITT [Concomitant]
     Dosage: 500 MILLIGRAM
     Route: 048
  9. ADJUST-A [Concomitant]
     Dosage: 40 MILLIGRAM
     Route: 065
  10. REVLIMID [Suspect]
     Indication: MULTIPLE MYELOMA
     Dosage: 25 MILLIGRAM
     Route: 048
     Dates: start: 20101110, end: 20101229
  11. DEXAMETHASONE [Suspect]
     Dosage: 40 MILLIGRAM
     Route: 048
     Dates: start: 20110119, end: 20110127
  12. REVLIMID [Suspect]
     Dosage: 25 MILLIGRAM
     Route: 048
     Dates: start: 20101208, end: 20101228
  13. DEXAMETHASONE [Suspect]
     Dosage: 40 MILLIGRAM
     Route: 048
     Dates: start: 20101208, end: 20101227
  14. SELBEX [Concomitant]
     Indication: PROPHYLAXIS
     Dosage: 50 MILLIGRAM
     Route: 048
     Dates: start: 20101110
  15. CELECOXIB [Concomitant]
     Dosage: 100 MILLIGRAM
     Route: 065
  16. CELECOXIB [Concomitant]
     Dosage: 200 MILLIGRAM
     Route: 048
     Dates: start: 20101208
  17. RABEPRAZOLE SODIUM [Concomitant]
     Dosage: 10 MILLIGRAM
     Route: 048
     Dates: start: 20101208
  18. ACTOS [Concomitant]
     Dosage: 15 MILLIGRAM
     Route: 048
     Dates: start: 20101208
  19. NESINA [Concomitant]
     Indication: DIABETES MELLITUS
     Dosage: 12.5 MILLIGRAM
     Route: 048
     Dates: start: 20101110
  20. LENDORMIN [Concomitant]
     Dosage: .25 MILLIGRAM
     Route: 048
  21. REVLIMID [Suspect]
     Dosage: 20 MILLIGRAM
     Route: 048
     Dates: start: 20110119, end: 20110126
  22. DEXAMETHASONE [Suspect]
     Indication: MULTIPLE MYELOMA
     Dosage: 40 MILLIGRAM
     Route: 048
     Dates: start: 20101110, end: 20101207
  23. ASPIRIN [Concomitant]
     Indication: PROPHYLAXIS
     Dosage: 100 MILLIGRAM
     Route: 048
     Dates: start: 20101110
  24. SEIBULE [Concomitant]
     Indication: DIABETES MELLITUS
     Dosage: 150 MILLIGRAM
     Route: 048
     Dates: start: 20101110
  25. NESINA [Concomitant]
     Dosage: 12.5 MILLIGRAM
     Route: 048
     Dates: start: 20101208

REACTIONS (3)
  - DIARRHOEA [None]
  - C-REACTIVE PROTEIN INCREASED [None]
  - WHITE BLOOD CELL COUNT DECREASED [None]
